FAERS Safety Report 17007507 (Version 1)
Quarter: 2019Q4

REPORT INFORMATION
  Report Type: Report from Study
  Country: JP (occurrence: JP)
  Receive Date: 20191108
  Receipt Date: 20191108
  Transmission Date: 20200122
  Serious: Yes (Hospitalization, Other)
  Sender: FDA-Public Use
  Company Number: JP-AMGEN-JPNCT2019184471

PATIENT
  Age: 85 Year
  Sex: Male

DRUGS (22)
  1. DARBEPOETIN ALFA [Suspect]
     Active Substance: DARBEPOETIN ALFA
     Dosage: 180 MICROGRAM, Q4WK
     Route: 065
     Dates: start: 20190111, end: 20190208
  2. URITOS [Concomitant]
     Active Substance: IMIDAFENACIN
     Indication: HYPERTONIC BLADDER
     Dosage: 0.2 MILLIGRAM
     Route: 048
  3. LUNESTA [Concomitant]
     Active Substance: ESZOPICLONE
     Indication: INSOMNIA
     Dosage: 1 MILLIGRAM
     Route: 048
  4. DARBEPOETIN ALFA [Suspect]
     Active Substance: DARBEPOETIN ALFA
     Dosage: 180 MICROGRAM, QWK
     Route: 065
     Dates: start: 20180914, end: 20180928
  5. OMEPRAZOLE. [Concomitant]
     Active Substance: OMEPRAZOLE
     Dosage: 10 MILLIGRAM
     Route: 048
     Dates: start: 201812
  6. DARBEPOETIN ALFA [Suspect]
     Active Substance: DARBEPOETIN ALFA
     Indication: MYELODYSPLASTIC SYNDROME
     Dosage: 120 MICROGRAM
     Route: 065
     Dates: start: 20180907, end: 20180907
  7. DARBEPOETIN ALFA [Suspect]
     Active Substance: DARBEPOETIN ALFA
     Dosage: 180 MICROGRAM, Q2WK
     Route: 065
     Dates: start: 20190214, end: 20190301
  8. NAFTOPIDIL [Concomitant]
     Active Substance: NAFTOPIDIL
     Indication: BENIGN PROSTATIC HYPERPLASIA
     Dosage: 25 MILLIGRAM
     Route: 048
     Dates: end: 201811
  9. CHIMAPHILA UMBELLATA EXTRACT;EQUISETUM ARVENSE EXTRACT;POPULUS ALBA EX [Concomitant]
     Indication: BENIGN PROSTATIC HYPERPLASIA
     Dosage: 3 DOSAGE FORM
     Route: 048
  10. DARBEPOETIN ALFA [Suspect]
     Active Substance: DARBEPOETIN ALFA
     Dosage: 180 MICROGRAM
     Route: 065
     Dates: start: 20190507, end: 20190507
  11. TAMSULOSIN HYDROCHLORIDE. [Concomitant]
     Active Substance: TAMSULOSIN HYDROCHLORIDE
     Indication: BENIGN PROSTATIC HYPERPLASIA
     Dosage: 0.2 MILLIGRAM
     Route: 048
     Dates: start: 201812
  12. OLMESARTAN [Concomitant]
     Active Substance: OLMESARTAN
     Indication: HYPERTENSION
     Dosage: 40 MILLIGRAM
     Route: 048
     Dates: end: 201811
  13. VALSARTAN. [Concomitant]
     Active Substance: VALSARTAN
     Indication: HYPERTENSION
     Dosage: 160 MILLIGRAM
     Route: 048
     Dates: start: 201811, end: 201902
  14. DARBEPOETIN ALFA [Suspect]
     Active Substance: DARBEPOETIN ALFA
     Dosage: 180 MICROGRAM
     Route: 065
     Dates: start: 20181201, end: 20181228
  15. DARBEPOETIN ALFA [Suspect]
     Active Substance: DARBEPOETIN ALFA
     Dosage: 180 MICROGRAM, Q2WK
     Route: 065
     Dates: start: 20190517, end: 20190531
  16. NOVORAPID [Concomitant]
     Active Substance: INSULIN ASPART
     Indication: TYPE 1 DIABETES MELLITUS
     Dosage: 30 INTERNATIONAL UNIT
     Route: 065
  17. TRESIBA [Concomitant]
     Active Substance: INSULIN DEGLUDEC
     Indication: TYPE 1 DIABETES MELLITUS
     Dosage: 13 INTERNATIONAL UNIT
     Route: 065
  18. AMLODIPINE [Concomitant]
     Active Substance: AMLODIPINE BESYLATE
     Indication: HYPERTENSION
     Dosage: 5 MILLIGRAM
     Route: 048
  19. DARBEPOETIN ALFA [Suspect]
     Active Substance: DARBEPOETIN ALFA
     Dosage: 180 MICROGRAM, QWK
     Route: 065
     Dates: start: 20190308, end: 20190425
  20. DARBEPOETIN ALFA [Suspect]
     Active Substance: DARBEPOETIN ALFA
     Dosage: 180 MICROGRAM, Q4WK
     Route: 065
     Dates: start: 20190706
  21. FLUNITRAZEPAM [Concomitant]
     Active Substance: FLUNITRAZEPAM
     Indication: INSOMNIA
     Dosage: 1 MILLIGRAM
     Route: 048
  22. ROZEREM [Concomitant]
     Active Substance: RAMELTEON
     Indication: INSOMNIA
     Dosage: 8 MILLIGRAM
     Route: 048

REACTIONS (6)
  - Pyrexia [Recovering/Resolving]
  - Road traffic accident [Recovering/Resolving]
  - Pyrexia [Recovering/Resolving]
  - Blood alkaline phosphatase increased [Not Recovered/Not Resolved]
  - Spinal compression fracture [Recovering/Resolving]
  - Myalgia [Recovering/Resolving]

NARRATIVE: CASE EVENT DATE: 20180907
